FAERS Safety Report 13180277 (Version 1)
Quarter: 2017Q1

REPORT INFORMATION
  Report Type: Spontaneous
  Country: BR (occurrence: BR)
  Receive Date: 20170202
  Receipt Date: 20170202
  Transmission Date: 20170428
  Serious: Yes (Hospitalization)
  Sender: FDA-Public Use
  Company Number: BR-DSJP-DSE-2017-102806

PATIENT

DRUGS (3)
  1. BENICAR HCT [Suspect]
     Active Substance: HYDROCHLOROTHIAZIDE\OLMESARTAN MEDOXOMIL
     Indication: HYPERTENSION
     Dosage: 40+12,5 MG, QD
     Route: 048
     Dates: start: 2014, end: 2015
  2. BENICAR HCT [Suspect]
     Active Substance: HYDROCHLOROTHIAZIDE\OLMESARTAN MEDOXOMIL
     Dosage: 40+12,5 MG, QD
     Route: 048
     Dates: start: 2016
  3. BENICAR ANLO 40/5 [Suspect]
     Active Substance: AMLODIPINE BESYLATE\OLMESARTAN MEDOXOMIL
     Indication: HYPERTENSION
     Dosage: 40+5 MG, QD
     Route: 048
     Dates: start: 2015, end: 2016

REACTIONS (5)
  - Wrong drug administered [None]
  - Neoplasm malignant [Not Recovered/Not Resolved]
  - Accidental exposure to product [Not Recovered/Not Resolved]
  - Benign pancreatic neoplasm [Not Recovered/Not Resolved]
  - Peripheral swelling [Not Recovered/Not Resolved]

NARRATIVE: CASE EVENT DATE: 2015
